FAERS Safety Report 23321534 (Version 6)
Quarter: 2024Q1

REPORT INFORMATION
  Report Type: Spontaneous
  Country: DE (occurrence: DE)
  Receive Date: 20231220
  Receipt Date: 20240313
  Transmission Date: 20240409
  Serious: Yes (Hospitalization)
  Sender: FDA-Public Use
  Company Number: DE-BRAINTREE LABORATORIES, INC.-2023BTE00923

PATIENT
  Sex: Male
  Weight: 107 kg

DRUGS (1)
  1. MAGNESIUM SULFATE\POTASSIUM SULFATE\SODIUM SULFATE [Suspect]
     Active Substance: MAGNESIUM SULFATE\POTASSIUM SULFATE\SODIUM SULFATE
     Indication: Colonoscopy
     Dosage: UNK
     Route: 065
     Dates: start: 20230315

REACTIONS (9)
  - Drug eruption [Unknown]
  - Erythema [Unknown]
  - Dyspnoea [Unknown]
  - Musculoskeletal stiffness [Unknown]
  - Swelling face [Recovered/Resolved]
  - Anxiety [Unknown]
  - Phobia [Unknown]
  - Illness [Unknown]
  - Poisoning [Unknown]

NARRATIVE: CASE EVENT DATE: 20230316
